FAERS Safety Report 17708116 (Version 7)
Quarter: 2024Q3

REPORT INFORMATION
  Report Type: Report from Study
  Country: CA (occurrence: CA)
  Receive Date: 20200425
  Receipt Date: 20240715
  Transmission Date: 20241017
  Serious: Yes (Hospitalization, Other)
  Sender: ROCHE
  Company Number: CA-002147023-PHHY2013CA130525

PATIENT
  Age: 21 Year
  Sex: Male

DRUGS (19)
  1. XOLAIR [Suspect]
     Active Substance: OMALIZUMAB
     Indication: Asthma
     Route: 058
     Dates: start: 20070327
  2. XOLAIR [Suspect]
     Active Substance: OMALIZUMAB
     Route: 058
     Dates: start: 20180322
  3. XOLAIR [Suspect]
     Active Substance: OMALIZUMAB
     Route: 058
     Dates: start: 20181005
  4. XOLAIR [Suspect]
     Active Substance: OMALIZUMAB
     Route: 058
     Dates: start: 20181130
  5. XOLAIR [Suspect]
     Active Substance: OMALIZUMAB
     Route: 058
     Dates: start: 20191010
  6. XOLAIR [Suspect]
     Active Substance: OMALIZUMAB
     Route: 058
     Dates: start: 20200302
  7. XOLAIR [Suspect]
     Active Substance: OMALIZUMAB
     Route: 058
     Dates: start: 20200326
  8. XOLAIR [Suspect]
     Active Substance: OMALIZUMAB
     Route: 058
     Dates: start: 20200423
  9. XOLAIR [Suspect]
     Active Substance: OMALIZUMAB
     Route: 058
     Dates: start: 20150130
  10. XOLAIR [Suspect]
     Active Substance: OMALIZUMAB
     Route: 058
     Dates: start: 20210616
  11. XOLAIR [Suspect]
     Active Substance: OMALIZUMAB
     Route: 058
     Dates: start: 20210616
  12. XOLAIR [Suspect]
     Active Substance: OMALIZUMAB
     Route: 058
  13. XOLAIR [Suspect]
     Active Substance: OMALIZUMAB
     Route: 058
  14. XOLAIR [Suspect]
     Active Substance: OMALIZUMAB
     Route: 058
  15. XOLAIR [Suspect]
     Active Substance: OMALIZUMAB
     Route: 058
  16. XOLAIR [Suspect]
     Active Substance: OMALIZUMAB
     Route: 058
  17. XOLAIR [Suspect]
     Active Substance: OMALIZUMAB
     Route: 058
  18. XOLAIR [Suspect]
     Active Substance: OMALIZUMAB
     Route: 058
  19. XOLAIR [Suspect]
     Active Substance: OMALIZUMAB
     Route: 058

REACTIONS (31)
  - Pneumonia [Unknown]
  - Pseudomonas infection [Unknown]
  - Bronchiectasis [Unknown]
  - Hypoventilation [Unknown]
  - Arthritis [Unknown]
  - Red blood cell count increased [Unknown]
  - Secretion discharge [Recovering/Resolving]
  - Bronchitis [Recovered/Resolved]
  - Lung disorder [Unknown]
  - Bronchial disorder [Unknown]
  - Mental disorder [Unknown]
  - Wheezing [Unknown]
  - Dyspnoea [Unknown]
  - General physical health deterioration [Unknown]
  - Pain [Unknown]
  - Back pain [Unknown]
  - Oropharyngeal pain [Unknown]
  - Asthenia [Unknown]
  - Chronic spontaneous urticaria [Unknown]
  - Influenza like illness [Unknown]
  - Nasopharyngitis [Unknown]
  - Pyrexia [Recovered/Resolved]
  - Rhinorrhoea [Unknown]
  - Asthma [Unknown]
  - Dizziness [Recovered/Resolved]
  - Septic shock [Unknown]
  - Acquired cerebral palsy [Unknown]
  - Respiratory tract infection [Unknown]
  - Fatigue [Unknown]
  - Increased viscosity of bronchial secretion [Unknown]
  - Cough [Unknown]

NARRATIVE: CASE EVENT DATE: 20180301
